FAERS Safety Report 11663790 (Version 2)
Quarter: 2015Q4

REPORT INFORMATION
  Report Type: Report from Study
  Country: US (occurrence: US)
  Receive Date: 20151027
  Receipt Date: 20151029
  Transmission Date: 20160304
  Serious: No
  Sender: FDA-Public Use
  Company Number: PHEH2014US022769

PATIENT
  Sex: Male
  Weight: 83.9 kg

DRUGS (1)
  1. EXJADE [Suspect]
     Active Substance: DEFERASIROX
     Indication: MYELOFIBROSIS
     Dosage: 1000 MG, QD (DISSOLVE 2 TABLET BY STIRRING IN 7 OUNCES OF WATER)
     Route: 065
     Dates: start: 201404

REACTIONS (3)
  - Dyspepsia [Unknown]
  - Sluggishness [Unknown]
  - Abdominal distension [Unknown]
